FAERS Safety Report 4856383-1 (Version None)
Quarter: 2005Q4

REPORT INFORMATION
  Report Type: 
  Country: None (occurrence: None)
  Receive Date: 20051219
  Receipt Date: 20050211
  Transmission Date: 20060501
  Serious: No
  Sender: FDA-Public Use
  Company Number: US-GLAXOSMITHKLINE-A0545241A

PATIENT

DRUGS (2)
  1. NICODERM CQ [Suspect]
     Indication: DRUG WITHDRAWAL MAINTENANCE THERAPY
  2. NICORETTE (ORANGE) [Suspect]
     Indication: DRUG WITHDRAWAL MAINTENANCE THERAPY

REACTIONS (2)
  - DRUG INEFFECTIVE [None]
  - NICOTINE DEPENDENCE [None]
